FAERS Safety Report 6958765 (Version 4)
Quarter: 2015Q2

REPORT INFORMATION
  Report Type: Spontaneous
  Country: IE (occurrence: IE)
  Receive Date: 20090402
  Receipt Date: 20150605
  Transmission Date: 20150821
  Serious: Yes (Death, Hospitalization, Other)
  Sender: FDA-Public Use
  Company Number: IE-PFIZER INC-2009190618

PATIENT
  Age: 84 Year
  Sex: Female
  Weight: 70 kg

DRUGS (8)
  1. DOXYCYCLINE. [Interacting]
     Active Substance: DOXYCYCLINE
     Indication: WOUND INFECTION
     Dosage: 100 MG, 2X/DAY
     Dates: start: 20090308, end: 20090309
  2. FLUCLOXACILLIN [Suspect]
     Active Substance: FLUCLOXACILLIN
     Indication: WOUND INFECTION
     Dosage: UNK
  3. LIPITOR [Interacting]
     Active Substance: ATORVASTATIN CALCIUM
     Indication: BLOOD CHOLESTEROL
  4. LIPITOR [Interacting]
     Active Substance: ATORVASTATIN CALCIUM
     Indication: ISCHAEMIC HEART DISEASE PROPHYLAXIS
     Dosage: 10 MG, UNK
     Route: 048
     Dates: start: 200807, end: 20090227
  5. FUCIDIN [Interacting]
     Active Substance: FUSIDIC ACID
     Indication: POSTOPERATIVE WOUND INFECTION
     Dosage: 500 MG, 2X/DAY
     Route: 048
     Dates: start: 20090218, end: 20090311
  6. LIPITOR [Interacting]
     Active Substance: ATORVASTATIN CALCIUM
     Indication: CARDIAC DISCOMFORT
  7. TEICOPLANIN [Interacting]
     Active Substance: TEICOPLANIN
     Indication: WOUND INFECTION
     Dosage: UNK
     Dates: start: 20090220, end: 20090306
  8. OMACOR [Concomitant]
     Active Substance: OMEGA-3-ACID ETHYL ESTERS
     Indication: STENT PLACEMENT

REACTIONS (6)
  - Drug interaction [Fatal]
  - Rhabdomyolysis [Fatal]
  - Renal failure [Fatal]
  - Postoperative wound infection [Fatal]
  - Arthralgia [Unknown]
  - Wound haemorrhage [Unknown]

NARRATIVE: CASE EVENT DATE: 2009
